FAERS Safety Report 10939991 (Version 1)
Quarter: 2015Q1

REPORT INFORMATION
  Report Type: Spontaneous
  Country: US (occurrence: None)
  Receive Date: 20150212
  Receipt Date: 20150212
  Transmission Date: 20150721
  Serious: Yes (Other)
  Sender: FDA-Public Use
  Company Number: TPA2012A09022

PATIENT
  Age: 22 Year
  Sex: Male

DRUGS (2)
  1. ULORIC [Suspect]
     Active Substance: FEBUXOSTAT
     Indication: HYPERURICAEMIA
     Route: 048
  2. ARB (BETA BLOCKING AGENTS) [Concomitant]

REACTIONS (2)
  - Blood creatinine increased [None]
  - Tubulointerstitial nephritis [None]
